FAERS Safety Report 8134800-1 (Version None)
Quarter: 2012Q1

REPORT INFORMATION
  Report Type: 
  Country: None (occurrence: None)
  Receive Date: 20120214
  Receipt Date: 20120202
  Transmission Date: 20120608
  Serious: Yes (Hospitalization, Other)
  Sender: FDA-Public Use
  Company Number: CA-JNJFOC-20120201863

PATIENT
  Sex: Male
  Weight: 73 kg

DRUGS (4)
  1. FLAGYL [Concomitant]
     Dates: start: 20120117
  2. CIPROFLOXACIN [Concomitant]
     Route: 065
  3. REMICADE [Suspect]
     Indication: CROHN'S DISEASE
     Route: 042
     Dates: start: 20080101
  4. HYDROCORTISONE [Concomitant]
     Indication: PREMEDICATION
     Route: 042

REACTIONS (1)
  - CROHN'S DISEASE [None]
